FAERS Safety Report 9623192 (Version 2)
Quarter: 2013Q4

REPORT INFORMATION
  Report Type: Spontaneous
  Country: US (occurrence: US)
  Receive Date: 20131015
  Receipt Date: 20131015
  Transmission Date: 20140711
  Serious: Yes (Other)
  Sender: FDA-Public Use
  Company Number: US-NAPPMUNDI-USA-2012-0087108

PATIENT
  Age: 63 Year
  Sex: Female
  Weight: 72.56 kg

DRUGS (5)
  1. BUTRANS [Suspect]
     Indication: PAIN
     Dosage: 5 MCG/HR, UNK
     Route: 062
     Dates: start: 20120417, end: 20120511
  2. INDERAL LA [Concomitant]
     Indication: MITRAL VALVE PROLAPSE
     Dosage: 60 MG, QOD
     Dates: start: 1980
  3. ELMIRON [Concomitant]
     Indication: CYSTITIS INTERSTITIAL
     Dosage: 100 MG, BID
     Dates: start: 2006
  4. HYDRALAZINE [Concomitant]
     Indication: CYSTITIS INTERSTITIAL
     Dosage: 10 MG, UNK
     Dates: start: 2006
  5. HYDROCODONE W/APAP                 /01554201/ [Concomitant]
     Indication: PRODUCT USED FOR UNKNOWN INDICATION
     Dosage: UNK, BID
     Dates: start: 2008

REACTIONS (6)
  - Swelling face [Not Recovered/Not Resolved]
  - Local swelling [Not Recovered/Not Resolved]
  - Erythema [Not Recovered/Not Resolved]
  - Lip discolouration [Not Recovered/Not Resolved]
  - Gastrointestinal motility disorder [Not Recovered/Not Resolved]
  - Inadequate analgesia [Unknown]
